FAERS Safety Report 17459233 (Version 2)
Quarter: 2020Q1

REPORT INFORMATION
  Report Type: Spontaneous
  Country: US (occurrence: US)
  Receive Date: 20200225
  Receipt Date: 20200323
  Transmission Date: 20200409
  Serious: Yes (Other)
  Sender: FDA-Public Use
  Company Number: US-CATALYST PHARMACEUTICALS, INC-2020CAT00036

PATIENT
  Sex: Female
  Weight: 72.56 kg

DRUGS (4)
  1. 6 UNSPECIFIED OTHER MEDICATIONS [Concomitant]
  2. FIRDAPSE [Suspect]
     Active Substance: AMIFAMPRIDINE
     Indication: MYASTHENIC SYNDROME
     Dosage: 5 MG, 4X/DAY
     Route: 048
     Dates: start: 20191212, end: 20200131
  3. FIRDAPSE [Suspect]
     Active Substance: AMIFAMPRIDINE
     Dosage: 5 MG, 4X/DAY
     Route: 048
  4. UNSPECIFIED CHEMOTHERAPY [Suspect]
     Active Substance: UNSPECIFIED INGREDIENT
     Indication: SMALL CELL LUNG CANCER
     Dosage: UNK
     Dates: start: 201911, end: 20200131

REACTIONS (6)
  - Feeding disorder [Not Recovered/Not Resolved]
  - Dysphagia [Not Recovered/Not Resolved]
  - Pruritus [Not Recovered/Not Resolved]
  - Optic nerve disorder [Not Recovered/Not Resolved]
  - Rash [Unknown]
  - Visual impairment [Not Recovered/Not Resolved]
